FAERS Safety Report 7727187-7 (Version None)
Quarter: 2011Q3

REPORT INFORMATION
  Report Type: 
  Country: None (occurrence: None)
  Receive Date: 20110902
  Receipt Date: 20110818
  Transmission Date: 20111222
  Serious: Yes (Other)
  Sender: FDA-Public Use
  Company Number: BR-BAYER-2011-075697

PATIENT
  Age: 72 Year
  Sex: Female

DRUGS (2)
  1. ACETYLSALICYLIC ACID + CAFFEINE [Suspect]
  2. ACETYLSALICYLIC ACID SRT [Suspect]

REACTIONS (3)
  - TENSION HEADACHE [None]
  - GASTRIC ULCER [None]
  - GLAUCOMA [None]
